FAERS Safety Report 6846364-0 (Version None)
Quarter: 2010Q3

REPORT INFORMATION
  Report Type: 
  Country: None (occurrence: None)
  Receive Date: 20100715
  Receipt Date: 20071108
  Transmission Date: 20110219
  Serious: No
  Sender: FDA-Public Use
  Company Number: US-PFIZER INC-2007078152

PATIENT
  Sex: Female
  Weight: 67.1 kg

DRUGS (7)
  1. CHANTIX [Suspect]
     Indication: SMOKING CESSATION THERAPY
     Dates: start: 20070830, end: 20070914
  2. PLAVIX [Concomitant]
  3. HYDROCODONE [Concomitant]
  4. CYCLOBENZAPRINE [Concomitant]
  5. REQUIP [Concomitant]
  6. TRAZODONE HYDROCHLORIDE [Concomitant]
  7. LORAZEPAM [Concomitant]

REACTIONS (6)
  - CONSTIPATION [None]
  - INSOMNIA [None]
  - NAUSEA [None]
  - ORAL HERPES [None]
  - ORAL PAIN [None]
  - PRURITUS [None]
